FAERS Safety Report 14548137 (Version 1)
Quarter: 2018Q1

REPORT INFORMATION
  Report Type: Spontaneous
  Country: BE (occurrence: BE)
  Receive Date: 20180219
  Receipt Date: 20180219
  Transmission Date: 20180509
  Serious: Yes (Death)
  Sender: FDA-Public Use
  Company Number: BE-B. BRAUN MEDICAL INC.-2042251

PATIENT
  Age: 48 Year
  Sex: Male

DRUGS (11)
  1. TAMBOCOR [Suspect]
     Active Substance: FLECAINIDE ACETATE
  2. FENISTIL [Concomitant]
     Active Substance: DIMETHINDENE
     Route: 048
     Dates: start: 20170913
  3. HEPARIN SODIUM IN DEXTROSE [Suspect]
     Active Substance: HEPARIN SODIUM
     Route: 042
  4. ASAFLOW 80 MG [Concomitant]
  5. ADENOSINE. [Suspect]
     Active Substance: ADENOSINE
  6. XANAX [Concomitant]
     Active Substance: ALPRAZOLAM
     Route: 048
     Dates: start: 20170913
  7. PROTAMINE SULFATE. [Suspect]
     Active Substance: PROTAMINE SULFATE
     Route: 042
     Dates: start: 20170913
  8. VISIPAQUE [Suspect]
     Active Substance: IODIXANOL
  9. SODIUM CHLORIDE. [Concomitant]
     Active Substance: SODIUM CHLORIDE
     Route: 042
     Dates: start: 20170913
  10. CEFAZOLIN SODIUM. [Concomitant]
     Active Substance: CEFAZOLIN SODIUM
     Route: 042
     Dates: start: 20170913
  11. EMCONCOR MINOR [Concomitant]
     Dates: start: 20170913

REACTIONS (3)
  - Circulatory collapse [Fatal]
  - Brain death [Fatal]
  - Ventricular fibrillation [Fatal]

NARRATIVE: CASE EVENT DATE: 20170913
